FAERS Safety Report 7610645-3 (Version None)
Quarter: 2011Q3

REPORT INFORMATION
  Report Type: 
  Country: None (occurrence: None)
  Receive Date: 20110707
  Receipt Date: 20110623
  Transmission Date: 20111222
  Serious: Yes (Other)
  Sender: FDA-Public Use
  Company Number: AUR-APL-2010-03200

PATIENT
  Age: 56 Year
  Sex: Female

DRUGS (6)
  1. METFORMIN HCL [Concomitant]
  2. FENOFIBRATE [Concomitant]
  3. ATORVASTATIN [Suspect]
     Indication: PRODUCT USED FOR UNKNOWN INDICATION
     Dosage: 10 MG,
     Dates: start: 20050528
  4. SIMVASTATIN [Suspect]
     Indication: PRODUCT USED FOR UNKNOWN INDICATION
     Dosage: 40 MG,
     Dates: start: 20050505
  5. PRAVASTATIN [Concomitant]
  6. ROSUVASTATIN [Concomitant]

REACTIONS (3)
  - MYALGIA [None]
  - HIGH DENSITY LIPOPROTEIN DECREASED [None]
  - APOLIPOPROTEIN DECREASED [None]
